FAERS Safety Report 16534041 (Version 1)
Quarter: 2019Q3

REPORT INFORMATION
  Report Type: Spontaneous
  Country: US (occurrence: US)
  Receive Date: 20190705
  Receipt Date: 20190705
  Transmission Date: 20191004
  Serious: No
  Sender: FDA-Public Use
  Company Number: US-BAYER-2019-122961

PATIENT
  Sex: Female
  Weight: 66 kg

DRUGS (3)
  1. BAYER LOW DOSE [Suspect]
     Active Substance: ASPIRIN
  2. ALEVE PM [Suspect]
     Active Substance: DIPHENHYDRAMINE HYDROCHLORIDE\NAPROXEN SODIUM
     Indication: PAIN
     Dosage: 1 DF
     Route: 048
     Dates: end: 20190626
  3. ALEVE [Suspect]
     Active Substance: NAPROXEN SODIUM

REACTIONS (5)
  - Off label use [Unknown]
  - Product use in unapproved indication [Unknown]
  - Expired product administered [Unknown]
  - Presyncope [Unknown]
  - Dizziness [Unknown]

NARRATIVE: CASE EVENT DATE: 20190626
